FAERS Safety Report 21569996 (Version 1)
Quarter: 2022Q4

REPORT INFORMATION
  Report Type: Spontaneous
  Country: US (occurrence: US)
  Receive Date: 20221109
  Receipt Date: 20221109
  Transmission Date: 20230113
  Serious: Yes (Death, Other)
  Sender: FDA-Public Use
  Company Number: US-BRISTOL-MYERS SQUIBB COMPANY-2022-132105

PATIENT
  Age: 68 Year
  Sex: Male

DRUGS (2)
  1. YERVOY [Suspect]
     Active Substance: IPILIMUMAB
     Indication: Product used for unknown indication
     Dosage: 2 X 50 MG
     Route: 042
     Dates: start: 20220912, end: 20220919
  2. OPDIVO [Suspect]
     Active Substance: NIVOLUMAB
     Indication: Product used for unknown indication
     Dosage: 4 X 100 MG
     Route: 042
     Dates: start: 20220912, end: 20220919

REACTIONS (1)
  - Death [Fatal]

NARRATIVE: CASE EVENT DATE: 20220921
